FAERS Safety Report 20647644 (Version 2)
Quarter: 2022Q2

REPORT INFORMATION
  Report Type: Report from Study
  Country: FR (occurrence: None)
  Receive Date: 20220329
  Receipt Date: 20220407
  Transmission Date: 20220721
  Serious: Yes (Hospitalization)
  Sender: FDA-Public Use
  Company Number: 2022A128335

PATIENT
  Age: 72 Year
  Sex: Male
  Weight: 92 kg

DRUGS (9)
  1. EVUSHELD [Suspect]
     Active Substance: CILGAVIMAB\TIXAGEVIMAB
     Indication: COVID-19 prophylaxis
     Route: 030
     Dates: start: 20220119
  2. MABTHERA [Concomitant]
     Active Substance: RITUXIMAB
  3. ESIDREX [Concomitant]
     Active Substance: HYDROCHLOROTHIAZIDE
  4. BISOPROLOL [Concomitant]
     Active Substance: BISOPROLOL
  5. XARELTO [Concomitant]
     Active Substance: RIVAROXABAN
  6. LERCANIDIPINE [Concomitant]
     Active Substance: LERCANIDIPINE
  7. OMEPRAZOLE [Concomitant]
     Active Substance: OMEPRAZOLE
  8. POLYETHYLENE GLYCOLS [Concomitant]
     Active Substance: POLYETHYLENE GLYCOLS
  9. CHOLECALCIFEROL [Concomitant]
     Active Substance: CHOLECALCIFEROL

REACTIONS (2)
  - COVID-19 [Not Recovered/Not Resolved]
  - Drug ineffective [Not Recovered/Not Resolved]

NARRATIVE: CASE EVENT DATE: 20220124
